FAERS Safety Report 11185185 (Version 2)
Quarter: 2015Q2

REPORT INFORMATION
  Report Type: Spontaneous
  Country: TR (occurrence: TR)
  Receive Date: 20150612
  Receipt Date: 20150618
  Transmission Date: 20150821
  Serious: Yes (Death, Other)
  Sender: FDA-Public Use
  Company Number: TR-UCBSA-2015018673

PATIENT
  Sex: Female

DRUGS (1)
  1. KEPPRA [Suspect]
     Active Substance: LEVETIRACETAM
     Indication: EPILEPSY
     Dosage: 750 MG/ DAY
     Route: 048
     Dates: start: 2008

REACTIONS (2)
  - Seizure [Unknown]
  - Sudden unexplained death in epilepsy [Fatal]

NARRATIVE: CASE EVENT DATE: 2014
